FAERS Safety Report 9812799 (Version 2)
Quarter: 2014Q1

REPORT INFORMATION
  Report Type: Spontaneous
  Country: PL (occurrence: PL)
  Receive Date: 20140113
  Receipt Date: 20140130
  Transmission Date: 20141002
  Serious: Yes (Hospitalization)
  Sender: FDA-Public Use
  Company Number: PL-RANBAXY-2013RR-77223

PATIENT
  Age: 82 Year
  Sex: Male

DRUGS (3)
  1. CEFUROXIME [Suspect]
     Indication: TOXIC EPIDERMAL NECROLYSIS
     Dosage: 0.5 MG, BID
     Route: 065
  2. CYCLOSPORINE A [Suspect]
     Indication: TOXIC EPIDERMAL NECROLYSIS
     Dosage: 4 MG/KG, UNK
     Route: 065
  3. METHYLPREDNISOLONE [Suspect]
     Indication: TOXIC EPIDERMAL NECROLYSIS
     Dosage: 48 MG, UNK
     Route: 065

REACTIONS (1)
  - Acute generalised exanthematous pustulosis [Recovered/Resolved]
